FAERS Safety Report 7458002-7 (Version None)
Quarter: 2011Q2

REPORT INFORMATION
  Report Type: 
  Country: None (occurrence: None)
  Receive Date: 20110504
  Receipt Date: 20110110
  Transmission Date: 20111010
  Serious: Yes (Other)
  Sender: FDA-Public Use
  Company Number: US-SANOFI-AVENTIS-2011SA002382

PATIENT
  Sex: Male

DRUGS (3)
  1. APIDRA [Suspect]
     Dosage: DOSE:11 UNIT(S)
     Route: 058
     Dates: start: 20110101, end: 20110101
  2. APIDRA [Suspect]
     Indication: TYPE 1 DIABETES MELLITUS
     Dosage: 5 UNITS BEFORE BREAKFAST AND LUNCH AND 10 UNITS BEFORE DINNER
     Route: 058
  3. LANTUS [Suspect]
     Indication: TYPE 1 DIABETES MELLITUS
     Dosage: DOSE:11 UNIT(S)
     Route: 058

REACTIONS (4)
  - BLOOD GLUCOSE INCREASED [None]
  - HYPOGLYCAEMIC UNCONSCIOUSNESS [None]
  - TREMOR [None]
  - WRONG DRUG ADMINISTERED [None]
